FAERS Safety Report 5949749-X (Version None)
Quarter: 2008Q4

REPORT INFORMATION
  Report Type: 
  Country: None (occurrence: None)
  Receive Date: 20081112
  Receipt Date: 20081104
  Transmission Date: 20090506
  Serious: Yes (Hospitalization, Other)
  Sender: FDA-Public Use
  Company Number: JP-ALLERGAN-0811688US

PATIENT
  Sex: Female

DRUGS (7)
  1. BOTULINUM TOXIN TYPE A [Suspect]
     Indication: TORTICOLLIS
     Dosage: 60 UNITS, SINGLE
     Dates: start: 20070817, end: 20070817
  2. BOTULINUM TOXIN TYPE A [Suspect]
     Dosage: 80 UNITS, UNK
     Dates: start: 20071112, end: 20071112
  3. BOTULINUM TOXIN TYPE A [Suspect]
     Dosage: 90 UNITS, SINGLE
     Dates: start: 20080208, end: 20080208
  4. BOTULINUM TOXIN TYPE A [Suspect]
     Dosage: 100 UNITS, SINGLE
     Dates: start: 20080512, end: 20080512
  5. CARBAMAZEPINE [Concomitant]
     Indication: DRUG USE FOR UNKNOWN INDICATION
     Dosage: 400 MG, QD
     Route: 048
  6. CLONAZEPAM [Concomitant]
     Indication: DRUG USE FOR UNKNOWN INDICATION
     Dosage: 1 MG, QD
     Route: 048
     Dates: start: 20000114
  7. ALUMINIUM HYDROXIDE W/ MAGNESIUM HYDROXIDE [Concomitant]
     Indication: DRUG USE FOR UNKNOWN INDICATION
     Dosage: 12 ML, QD
     Route: 048
     Dates: start: 19991219

REACTIONS (4)
  - ANOREXIA [None]
  - BLOOD CREATINE PHOSPHOKINASE INCREASED [None]
  - CONSTIPATION [None]
  - GASTRITIS HAEMORRHAGIC [None]
